FAERS Safety Report 8189616-7 (Version None)
Quarter: 2012Q1

REPORT INFORMATION
  Report Type: 
  Country: None (occurrence: None)
  Receive Date: 20120305
  Receipt Date: 20120221
  Transmission Date: 20120608
  Serious: Yes (Hospitalization)
  Sender: FDA-Public Use
  Company Number: FRA-CLT-2012011

PATIENT
  Sex: Female

DRUGS (7)
  1. CYSTADANE [Suspect]
     Indication: HOMOCYSTINURIA
     Dosage: 7 G EVERY DAY ORAL
     Route: 048
     Dates: start: 20090101
  2. METFORMIN HCL [Concomitant]
  3. IRBESARTAN [Concomitant]
  4. IRBESARTAN [Concomitant]
  5. GLUCOPHAGE [Concomitant]
  6. LYSINE-ACETYLSALYCYLATE [Concomitant]
  7. ASPEGIC 1000 [Concomitant]

REACTIONS (6)
  - MATERNAL EXPOSURE DURING PREGNANCY [None]
  - MUSCULOSKELETAL CHEST PAIN [None]
  - CHILLS [None]
  - MUSCULOSKELETAL PAIN [None]
  - ABORTION SPONTANEOUS [None]
  - PYREXIA [None]
